FAERS Safety Report 8368898-2 (Version None)
Quarter: 2012Q2

REPORT INFORMATION
  Report Type: 
  Country: None (occurrence: None)
  Receive Date: 20120516
  Receipt Date: 20120503
  Transmission Date: 20120825
  Serious: Yes (Hospitalization)
  Sender: FDA-Public Use
  Company Number: IMP_05767_2012

PATIENT
  Sex: Male
  Weight: 85.7298 kg

DRUGS (3)
  1. OXYMORPHONE HYDROCHLORIDE [Suspect]
     Dosage: 40 MG, ONCE ORAL UNKNOWN INDICATION
     Route: 048
     Dates: start: 20120301
  2. NALTREXONE HYDROCHLORIDE [Concomitant]
  3. OXYMORPHONE HYDROCHLORIDE [Suspect]
     Indication: PRODUCT USED FOR UNKNOWN INDICATION
     Dosage: DOSE NOT GIVEN

REACTIONS (10)
  - ATRIAL FIBRILLATION [None]
  - HYPERHIDROSIS [None]
  - LYMPHOCYTE COUNT INCREASED [None]
  - DIZZINESS [None]
  - CHEST DISCOMFORT [None]
  - NAUSEA [None]
  - HEADACHE [None]
  - HEART RATE IRREGULAR [None]
  - DYSPNOEA [None]
  - VOMITING [None]
